FAERS Safety Report 9626768 (Version 1)
Quarter: 2013Q4

REPORT INFORMATION
  Report Type: Spontaneous
  Country: US (occurrence: US)
  Receive Date: 20131016
  Receipt Date: 20131016
  Transmission Date: 20140711
  Serious: Yes (Hospitalization, Other)
  Sender: FDA-Public Use
  Company Number: US-GLAXOSMITHKLINE-A1045497A

PATIENT
  Age: 50 Year
  Sex: Female
  Weight: 68.2 kg

DRUGS (3)
  1. LAMICTAL [Suspect]
     Indication: DEPRESSION
     Route: 065
  2. EFFEXOR XR [Suspect]
     Indication: DEPRESSION
     Route: 065
     Dates: start: 2005
  3. VENLAFAXINE HYDROCHLORIDE [Suspect]
     Indication: PRODUCT USED FOR UNKNOWN INDICATION

REACTIONS (10)
  - Suicidal ideation [Unknown]
  - Depressed mood [Unknown]
  - Feeling abnormal [Unknown]
  - Anxiety [Unknown]
  - Crying [Unknown]
  - Depression [Unknown]
  - Oral discomfort [Unknown]
  - Panic attack [Unknown]
  - Tremor [Unknown]
  - Drug administration error [Unknown]
